FAERS Safety Report 10227179 (Version 1)
Quarter: 2014Q2

REPORT INFORMATION
  Report Type: Spontaneous
  Country: US (occurrence: None)
  Receive Date: 20140606
  Receipt Date: 20140606
  Transmission Date: 20141212
  Serious: No
  Sender: FDA-Public Use
  Company Number: US-145538

PATIENT
  Age: 44 Year
  Sex: Male
  Weight: 76 kg

DRUGS (5)
  1. BOTULISM ANTITOXIN [Suspect]
     Indication: BOTULISM
     Dates: start: 20140506
  2. FENTANYL [Concomitant]
  3. LEVOPHED [Concomitant]
  4. VANCOMYCIN [Concomitant]
  5. ZOSYN [Concomitant]

REACTIONS (3)
  - Body temperature increased [None]
  - Blood pressure increased [None]
  - Tachycardia [None]
